FAERS Safety Report 23965055 (Version 6)
Quarter: 2024Q4

REPORT INFORMATION
  Report Type: Report from Study
  Country: US (occurrence: US)
  Receive Date: 20240612
  Receipt Date: 20241121
  Transmission Date: 20250115
  Serious: Yes (Hospitalization)
  Sender: BIOGEN
  Company Number: US-BIOGEN-2024BI01268448

PATIENT
  Age: 39 Year
  Sex: Female
  Weight: 80.3 kg

DRUGS (31)
  1. SKYCLARYS [Suspect]
     Active Substance: OMAVELOXOLONE
     Indication: Friedreich^s ataxia
     Route: 050
     Dates: start: 20231127
  2. SKYCLARYS [Suspect]
     Active Substance: OMAVELOXOLONE
     Route: 050
     Dates: start: 20231127
  3. SKYCLARYS [Suspect]
     Active Substance: OMAVELOXOLONE
     Route: 050
     Dates: end: 20241022
  4. ELIQUIS [Concomitant]
     Active Substance: APIXABAN
     Indication: Product used for unknown indication
     Route: 050
     Dates: start: 20220725
  5. ASPIRIN [Concomitant]
     Active Substance: ASPIRIN
     Indication: Product used for unknown indication
     Route: 050
  6. BACLOFEN [Concomitant]
     Active Substance: BACLOFEN
     Indication: Product used for unknown indication
     Route: 050
     Dates: start: 20200909
  7. CHOLECALCIFEROL [Concomitant]
     Active Substance: CHOLECALCIFEROL
     Indication: Product used for unknown indication
     Route: 050
  8. CITALOPRAM [Concomitant]
     Active Substance: CITALOPRAM
     Indication: Product used for unknown indication
     Route: 050
  9. FARXIGA [Concomitant]
     Active Substance: DAPAGLIFLOZIN PROPANEDIOL
     Indication: Product used for unknown indication
     Route: 050
     Dates: start: 20230619
  10. FERROUS SULFATE [Concomitant]
     Active Substance: FERROUS SULFATE
     Indication: Product used for unknown indication
     Route: 050
  11. FERROUS SULFATE [Concomitant]
     Active Substance: FERROUS SULFATE
     Route: 050
  12. FLUTICASONE PROPIONATE [Concomitant]
     Active Substance: FLUTICASONE PROPIONATE
     Indication: Product used for unknown indication
     Route: 050
  13. Horse chestnut seed [Concomitant]
     Indication: Product used for unknown indication
     Route: 050
  14. ACETAMINOPHEN\HYDROCODONE [Concomitant]
     Active Substance: ACETAMINOPHEN\HYDROCODONE
     Indication: Product used for unknown indication
     Dosage: 5-325 MG
     Route: 050
     Dates: start: 20151102
  15. Ketorolac (toradol) [Concomitant]
     Indication: Pain
     Route: 050
  16. Lactulose (chronulac) [Concomitant]
     Indication: Product used for unknown indication
     Route: 050
     Dates: start: 20200713
  17. Lamotrigine (lamictal XR) [Concomitant]
     Indication: Product used for unknown indication
     Route: 050
  18. VICTOZA [Concomitant]
     Active Substance: LIRAGLUTIDE
     Indication: Product used for unknown indication
     Route: 050
  19. MAGNESIUM [Concomitant]
     Active Substance: MAGNESIUM
     Indication: Product used for unknown indication
     Route: 050
  20. MELATONIN [Concomitant]
     Active Substance: MELATONIN
     Indication: Product used for unknown indication
     Route: 050
  21. MOBIC [Concomitant]
     Active Substance: MELOXICAM
     Indication: Arthralgia
     Route: 050
     Dates: start: 20211212
  22. Metformin (glucophage) [Concomitant]
     Indication: Product used for unknown indication
     Route: 050
  23. Metoprolol tartrate (lopressor) [Concomitant]
     Indication: Product used for unknown indication
     Route: 050
     Dates: start: 20220725
  24. prochlorperazine (compazine) [Concomitant]
     Indication: Product used for unknown indication
     Dosage: 1-2 TABLETS 5-10MG
     Route: 050
     Dates: start: 20161108
  25. Rizatriptan (maxalt) [Concomitant]
     Indication: Product used for unknown indication
     Route: 050
     Dates: start: 20231013
  26. SENNOSIDES [Concomitant]
     Active Substance: SENNOSIDES
     Indication: Product used for unknown indication
     Route: 050
  27. co-enzyme Q-10 [Concomitant]
     Indication: Product used for unknown indication
     Dosage: 400 MG MORNING THEN 200 MG EVENING
     Route: 050
  28. VITAMIN B COMPLEX [Concomitant]
     Active Substance: CYANOCOBALAMIN\DEXPANTHENOL\NIACINAMIDE\PYRIDOXINE HYDROCHLORIDE\RIBOFLAVIN 5^-PHOSPHATE SODIUM\THIA
     Indication: Product used for unknown indication
     Route: 050
  29. VITAMIN E [Concomitant]
     Active Substance: .ALPHA.-TOCOPHEROL
     Indication: Product used for unknown indication
     Dosage: 1000 UNITS
     Route: 050
  30. ZONISAMIDE [Concomitant]
     Active Substance: ZONISAMIDE
     Indication: Product used for unknown indication
     Route: 050
     Dates: start: 20200805
  31. ZONISAMIDE [Concomitant]
     Active Substance: ZONISAMIDE
     Route: 050
     Dates: start: 20231013

REACTIONS (2)
  - Atrial fibrillation [Unknown]
  - Abdominal distension [Recovered/Resolved]

NARRATIVE: CASE EVENT DATE: 20240716
